FAERS Safety Report 9891604 (Version 1)
Quarter: 2014Q1

REPORT INFORMATION
  Report Type: Spontaneous
  Country: US (occurrence: None)
  Receive Date: 20140207
  Receipt Date: 20140207
  Transmission Date: 20141002
  Serious: Yes (Death)
  Sender: FDA-Public Use
  Company Number: SYM-2014-15397

PATIENT
  Age: 51 Year
  Sex: Male

DRUGS (5)
  1. DIAZEPAM [Suspect]
     Indication: PRODUCT USED FOR UNKNOWN INDICATION
     Dosage: ORAL  UNKNOWN - UNKNOWN  THERAPY DATES
     Route: 048
  2. CHLORDIAZEPOXIDE (CHLORDIAZEPOXIDE) (CHLORDIAZEPOXIDE) [Suspect]
     Indication: PRODUCT USED FOR UNKNOWN INDICATION
     Dosage: ORAL  UNKNOWN-UNKNOWN THERAPY DATES
     Route: 048
  3. FLUOXETINE (FLUOXETINE) (FLUOXETINE) [Suspect]
     Indication: PRODUCT USED FOR UNKNOWN INDICATION
     Dosage: ORAL  UNKNOWN - UNKNOWN THERAPY DATES
     Route: 048
  4. OXYCODONE (OXYCODONE) (OXYCODONE) [Suspect]
     Indication: PRODUCT USED FOR UNKNOWN INDICATION
     Dosage: ORAL UNKNOWN - UNKNOWN THERAPY DATES
     Route: 048
  5. CLOZAPINE [Suspect]
     Indication: PRODUCT USED FOR UNKNOWN INDICATION
     Dosage: ORAL  UNKNOWN - UNKNOWN  THERAPY DATES
     Route: 048

REACTIONS (2)
  - Poisoning [None]
  - Exposure via ingestion [None]
